FAERS Safety Report 4360618-1 (Version None)
Quarter: 2004Q2

REPORT INFORMATION
  Report Type: 
  Country: None (occurrence: None)
  Receive Date: 20040519
  Receipt Date: 20040311
  Transmission Date: 20050107
  Serious: Yes (Disabling)
  Sender: FDA-Public Use
  Company Number: US-MERCK-0403USA01237

PATIENT
  Age: 40 Year
  Sex: Female
  Weight: 130 kg

DRUGS (10)
  1. VIOXX [Suspect]
     Indication: RHEUMATOID ARTHRITIS
     Route: 048
     Dates: start: 20000301, end: 20020201
  2. VIOXX [Suspect]
     Route: 048
     Dates: start: 20000301, end: 20020201
  3. MERIDIA [Concomitant]
     Indication: WEIGHT
     Route: 065
  4. AMBIEN [Concomitant]
     Indication: SLEEP DISORDER
     Route: 065
  5. ASPIRIN [Concomitant]
     Route: 065
     Dates: start: 19980101, end: 20020101
  6. CELEBREX [Concomitant]
     Indication: ARTHRITIS
     Route: 065
     Dates: start: 19980101, end: 20020101
  7. ANTIVERT [Concomitant]
     Indication: VERTIGO
     Route: 065
  8. RELAFEN [Concomitant]
     Indication: ARTHRALGIA
     Route: 065
  9. NAPROXEN [Concomitant]
     Route: 065
     Dates: start: 19980101, end: 20020101
  10. VIOXX [Suspect]
     Route: 048
     Dates: start: 20000301, end: 20020201

REACTIONS (23)
  - ANGINA PECTORIS [None]
  - ANXIETY [None]
  - ARTHRALGIA [None]
  - BACK INJURY [None]
  - BACK PAIN [None]
  - BRONCHITIS CHRONIC [None]
  - CARDIAC FAILURE CONGESTIVE [None]
  - EMOTIONAL DISTRESS [None]
  - GASTRIC DISORDER [None]
  - GASTRIC ULCER [None]
  - HYPERTENSION [None]
  - INTERVERTEBRAL DISC DEGENERATION [None]
  - INTERVERTEBRAL DISC PROTRUSION [None]
  - JOINT EFFUSION [None]
  - JOINT INJURY [None]
  - LIGAMENT INJURY [None]
  - LOCALISED OSTEOARTHRITIS [None]
  - MAJOR DEPRESSION [None]
  - MENISCUS LESION [None]
  - PRESCRIBED OVERDOSE [None]
  - RADICULOPATHY [None]
  - ROTATOR CUFF SYNDROME [None]
  - SPONDYLOSIS [None]
